FAERS Safety Report 9670164 (Version 2)
Quarter: 2013Q4

REPORT INFORMATION
  Report Type: Spontaneous
  Country: JP (occurrence: JP)
  Receive Date: 20131105
  Receipt Date: 20131105
  Transmission Date: 20140711
  Serious: Yes (Death)
  Sender: FDA-Public Use
  Company Number: PHHY2013JP109675

PATIENT
  Sex: Male

DRUGS (3)
  1. RIFAMPICIN SANDOZ [Suspect]
     Indication: ATYPICAL MYCOBACTERIAL INFECTION
     Dosage: 450 MG, UNK
     Route: 048
  2. ESANBUTOL [Concomitant]
     Indication: ATYPICAL MYCOBACTERIAL INFECTION
     Dosage: 3 DF, UNK
     Route: 048
  3. CLARITHROMYCIN [Concomitant]
     Indication: ATYPICAL MYCOBACTERIAL INFECTION
     Dosage: 800 MG, UNK
     Route: 048

REACTIONS (5)
  - Pneumonia [Fatal]
  - Blister [Recovering/Resolving]
  - Erythema [Unknown]
  - Pruritus [Unknown]
  - Pain [Unknown]
